FAERS Safety Report 4669524-6 (Version None)
Quarter: 2005Q2

REPORT INFORMATION
  Report Type: 
  Country: None (occurrence: None)
  Receive Date: 20050523
  Receipt Date: 20050513
  Transmission Date: 20051028
  Serious: Yes (Other)
  Sender: FDA-Public Use
  Company Number: US-ROCHE-404886

PATIENT
  Age: 67 Year
  Sex: Female
  Weight: 96.2 kg

DRUGS (9)
  1. XENICAL [Suspect]
     Indication: OBESITY
     Dosage: DOSE TAKEN WITH MEALS.
     Route: 048
     Dates: start: 20050511, end: 20050515
  2. XENICAL [Suspect]
     Dosage: SECOND THERAPY, STARTED FOUR DAYS AFTER STOPPING FIRST THERAPY.
     Route: 048
     Dates: start: 20050515
  3. LIPITOR [Concomitant]
     Indication: HYPERCHOLESTEROLAEMIA
     Route: 048
     Dates: start: 20040515
  4. ACCUPRIL [Concomitant]
     Indication: BLOOD PRESSURE
     Dosage: DURATION REPORTED AS YEARS. ONE DOSE GIVEN AM, ONE DOSE GIVEN PM.
     Route: 048
  5. NORVASC [Concomitant]
     Indication: BLOOD PRESSURE
     Dosage: DURATION REPORTED AS YEARS.
     Route: 048
  6. HUMULIN L [Concomitant]
     Dosage: 54 UNITS GIVEN AM, 30 UNITS GIVEN PM.
     Route: 058
  7. LASIX [Concomitant]
     Indication: FLUID RETENTION
     Route: 048
  8. METOLAZONE [Concomitant]
     Indication: FLUID RETENTION
     Route: 048
  9. ASPIRIN [Concomitant]
     Route: 048

REACTIONS (2)
  - BLOOD GLUCOSE INCREASED [None]
  - VISION BLURRED [None]
